FAERS Safety Report 14211737 (Version 1)
Quarter: 2017Q4

REPORT INFORMATION
  Report Type: Spontaneous
  Country: US (occurrence: None)
  Receive Date: 20171121
  Receipt Date: 20171121
  Transmission Date: 20180321
  Serious: Yes (Other)
  Sender: FDA-Public Use
  Company Number: None

PATIENT
  Age: 90 Year
  Sex: Male

DRUGS (10)
  1. GLEEVEC [Suspect]
     Active Substance: IMATINIB MESYLATE
     Indication: CYSTIC FIBROSIS
     Route: 048
     Dates: start: 20140114
  2. FOLIC ACID. [Concomitant]
     Active Substance: FOLIC ACID
  3. AMLODIPINE [Concomitant]
     Active Substance: AMLODIPINE BESYLATE
  4. FLUTICASONE. [Concomitant]
     Active Substance: FLUTICASONE
  5. ALFUZOSIN [Concomitant]
     Active Substance: ALFUZOSIN
  6. OMPERAZOLE [Concomitant]
     Active Substance: OMEPRAZOLE
  7. ATORVASTATIN [Concomitant]
     Active Substance: ATORVASTATIN
  8. METOPROLOL. [Concomitant]
     Active Substance: METOPROLOL
  9. GLEEVEC [Concomitant]
     Active Substance: IMATINIB MESYLATE
  10. ELIGARD [Concomitant]
     Active Substance: LEUPROLIDE ACETATE

REACTIONS (2)
  - Blood iron decreased [None]
  - Transfusion [None]

NARRATIVE: CASE EVENT DATE: 20170926
